FAERS Safety Report 6454848-2 (Version None)
Quarter: 2009Q4

REPORT INFORMATION
  Report Type: 
  Country: None (occurrence: None)
  Receive Date: 20091124
  Receipt Date: 20091116
  Transmission Date: 20100525
  Serious: Yes (Hospitalization)
  Sender: FDA-Public Use
  Company Number: US-PFIZER INC-2009285853

PATIENT
  Sex: Female
  Weight: 59.864 kg

DRUGS (5)
  1. XANAX [Suspect]
     Dosage: 5 DF, 1X/DAY
     Route: 048
     Dates: start: 20090921, end: 20090921
  2. DOUBLE BLIND STUDY DRUG [Suspect]
     Indication: BIPOLAR I DISORDER
     Dosage: UNK,1X/DAY
     Route: 048
     Dates: start: 20090812, end: 20090917
  3. MULTI-VITAMINS [Concomitant]
     Indication: ROUTINE HEALTH MAINTENANCE
     Dosage: 2 DF, 1X/DAY
     Route: 048
     Dates: start: 20080101
  4. PROGESTOGENS AND ESTROGENS IN COMBINATION [Concomitant]
     Indication: CONTRACEPTION
     Dosage: 0.25/0.35 MG DAILY
     Route: 048
     Dates: start: 20090301
  5. PROTEIN SUPPLEMENTS [Concomitant]
     Indication: ROUTINE HEALTH MAINTENANCE
     Dosage: 1 DF, 1X/DAY
     Route: 048
     Dates: start: 20090101

REACTIONS (2)
  - OVERDOSE [None]
  - SUICIDE ATTEMPT [None]
